FAERS Safety Report 7795379-7 (Version None)
Quarter: 2011Q4

REPORT INFORMATION
  Report Type: 
  Country: None (occurrence: None)
  Receive Date: 20111004
  Receipt Date: 20110922
  Transmission Date: 20120403
  Serious: Yes (Hospitalization)
  Sender: FDA-Public Use
  Company Number: CA-JNJFOC-20110507757

PATIENT
  Sex: Female
  Weight: 73 kg

DRUGS (7)
  1. REMICADE [Suspect]
     Indication: CROHN'S DISEASE
     Route: 042
     Dates: start: 20110516
  2. PULMICORT [Concomitant]
  3. REMICADE [Suspect]
     Route: 042
     Dates: start: 20070801
  4. LABETALOL HCL [Concomitant]
  5. LABETALOL HCL [Concomitant]
  6. VENTOLIN HFA [Concomitant]
  7. AMLODIPINE [Concomitant]

REACTIONS (3)
  - GESTATIONAL HYPERTENSION [None]
  - INFUSION RELATED REACTION [None]
  - MATERNAL EXPOSURE DURING PREGNANCY [None]
